FAERS Safety Report 6706296-5 (Version None)
Quarter: 2010Q2

REPORT INFORMATION
  Report Type: 
  Country: None (occurrence: None)
  Receive Date: 20100503
  Receipt Date: 20100421
  Transmission Date: 20101027
  Serious: No
  Sender: FDA-Public Use
  Company Number: US-B.I. PHARMACEUTICALS,INC./RIDGEFIELD-2010-BP-04653BP

PATIENT
  Sex: Male

DRUGS (9)
  1. SPIRIVA [Suspect]
     Indication: CHRONIC OBSTRUCTIVE PULMONARY DISEASE
     Dosage: 18 MCG
     Route: 055
     Dates: start: 20100101
  2. METOPROLOL [Concomitant]
     Indication: HYPERTENSION
     Dates: start: 20000101
  3. ZOCOR [Concomitant]
     Indication: BLOOD CHOLESTEROL INCREASED
  4. LASIX [Concomitant]
     Indication: HYPERTENSION
  5. PRILOSEC [Concomitant]
     Indication: GASTROOESOPHAGEAL REFLUX DISEASE
  6. TRICOR [Concomitant]
     Indication: BLOOD CHOLESTEROL INCREASED
  7. RAMIPRIL [Concomitant]
     Indication: HYPERTENSION
  8. ASPIRIN [Concomitant]
     Indication: PROPHYLAXIS
  9. FOLIC ACID [Concomitant]
     Indication: PROPHYLAXIS

REACTIONS (1)
  - DRUG INEFFECTIVE [None]
